FAERS Safety Report 24125660 (Version 1)
Quarter: 2024Q3

REPORT INFORMATION
  Report Type: Other
  Country: FR (occurrence: FR)
  Receive Date: 20240723
  Receipt Date: 20240723
  Transmission Date: 20241016
  Serious: Yes (Hospitalization)
  Sender: SHIONOGI
  Company Number: FR-AFSSAPS-LL2024001285

PATIENT

DRUGS (2)
  1. CEFIDEROCOL SULFATE TOSYLATE [Suspect]
     Active Substance: CEFIDEROCOL SULFATE TOSYLATE
     Indication: Infection
     Dosage: UNK
     Route: 065
     Dates: start: 20240530, end: 20240708
  2. COLISTIN SULFATE [Suspect]
     Active Substance: COLISTIN SULFATE
     Indication: Infection
     Dosage: UNK
     Route: 065
     Dates: start: 20240530, end: 20240625

REACTIONS (1)
  - Agranulocytosis [Not Recovered/Not Resolved]

NARRATIVE: CASE EVENT DATE: 20240625
